FAERS Safety Report 9086047 (Version 1)
Quarter: 2013Q1

REPORT INFORMATION
  Report Type: Report from Study
  Country: US (occurrence: US)
  Receive Date: 20130130
  Receipt Date: 20130130
  Transmission Date: 20140127
  Serious: No
  Sender: FDA-Public Use
  Company Number: US-ABBOTT-12P-163-0988482-00

PATIENT
  Age: 35 Year
  Sex: Female

DRUGS (3)
  1. HUMIRA [Suspect]
     Indication: PSORIASIS
     Dates: start: 20120907, end: 20120907
  2. HUMIRA [Suspect]
     Dates: start: 20120914
  3. UNKNOWN BIRTH CONTROL PILLS [Concomitant]
     Indication: CONTRACEPTION

REACTIONS (5)
  - Cough [Not Recovered/Not Resolved]
  - Sinus operation [Unknown]
  - Cough [Unknown]
  - Bronchitis [Unknown]
  - Sinusitis [Unknown]
